FAERS Safety Report 9886119 (Version 1)
Quarter: 2014Q1

REPORT INFORMATION
  Report Type: Report from Study
  Country: BE (occurrence: BE)
  Receive Date: 20140210
  Receipt Date: 20140210
  Transmission Date: 20141002
  Serious: Yes (Hospitalization)
  Sender: FDA-Public Use
  Company Number: PHHY2014BE014774

PATIENT
  Age: 83 Year
  Sex: Female

DRUGS (25)
  1. CAPECITABINE [Suspect]
     Indication: HER-2 POSITIVE GASTRIC CANCER
     Dosage: 100 MG, 2 IN 1 DAY
     Route: 048
     Dates: end: 20131128
  2. 5-FLUOROURACIL [Suspect]
     Indication: HER-2 POSITIVE GASTRIC CANCER
     Dosage: 6936 MG, 1 IN 3 WEEKS
     Route: 042
     Dates: start: 20131128
  3. CISPLATIN [Suspect]
     Indication: HER-2 POSITIVE GASTRIC CANCER
     Dosage: 139 MG, 1 IN 3 WEEK
     Route: 042
     Dates: start: 20131128
  4. PERTUZUMAB [Suspect]
     Indication: HER-2 POSITIVE GASTRIC CANCER
     Dosage: UNK UKN, UNK
     Route: 042
     Dates: start: 20131128
  5. TRASTUZUMAB [Suspect]
     Indication: HER-2 POSITIVE GASTRIC CANCER
     Dosage: 533 MG, 1 IN 3 WEEK
     Route: 042
     Dates: start: 20131128
  6. LISINOPRIL [Concomitant]
     Indication: HYPERTENSION
     Dosage: 2.5 MG, UNK
     Route: 048
     Dates: start: 2010
  7. PANTOMED//PANTOPRAZOLE SODIUM SESQUIHYDRATE [Concomitant]
     Indication: PROPHYLAXIS
     Dosage: 40 MG, UNK
     Route: 048
     Dates: start: 20110201
  8. GLUCOPHAGE [Concomitant]
     Indication: DIABETES MELLITUS
     Dosage: UNK UKN, UNK
     Route: 048
  9. TENORMIN [Concomitant]
     Indication: HYPERTENSION
     Dosage: 50 MG, UNK
     Route: 048
  10. DAFALGAN [Concomitant]
     Indication: PAIN
     Dosage: 500 MG, UNK
     Route: 048
     Dates: start: 20101021
  11. EMEND [Concomitant]
     Indication: NAUSEA
     Dosage: 80 MG, UNK
     Route: 048
     Dates: start: 20131130, end: 20131201
  12. CIPROXINE [Concomitant]
     Indication: URINARY TRACT INFECTION
     Dosage: 500 MG, UNK
     Route: 048
     Dates: start: 20131128, end: 20131206
  13. MEDROL [Concomitant]
     Indication: NAUSEA
     Dosage: 48 MG, UNK
     Route: 048
     Dates: start: 20131129, end: 20131201
  14. ONDANSETRON [Concomitant]
     Indication: NAUSEA
     Dosage: 8 MG, UNK
     Route: 048
     Dates: start: 20131128, end: 20131201
  15. TAZOCIN [Concomitant]
     Indication: FEBRILE NEUTROPENIA
     Dosage: 4 DF, UNK
     Route: 042
     Dates: start: 20131213, end: 20131216
  16. AUGMENTIN [Concomitant]
     Indication: INFECTION
     Dosage: 875 MG, UNK
     Route: 048
     Dates: start: 20131217, end: 20131224
  17. AMLOR [Concomitant]
     Indication: HYPERTENSION
     Dosage: 5 MG, UNK
     Route: 048
     Dates: start: 20131204
  18. ASAFLOW [Concomitant]
     Indication: CARDIAC DISORDER
     Dosage: UNK UKN, UNK
     Route: 048
     Dates: start: 20131204
  19. CORUNO [Concomitant]
     Indication: CARDIAC DISORDER
     Dosage: 16 MG, UNK
     Route: 048
     Dates: start: 20131204
  20. MOTILIUM [Concomitant]
     Indication: NAUSEA
     Dosage: 10 MG, UNK
     Route: 048
     Dates: start: 20131204
  21. TRADONAL [Concomitant]
     Indication: PAIN
     Dosage: 50 MG, UNK
     Route: 048
     Dates: start: 20131204
  22. ZESTRIL [Concomitant]
     Indication: HYPERTENSION
     Dosage: 2.5 MG, UNK
     Route: 048
     Dates: start: 20131204
  23. BLOOD TRANSFUSION, AUXILIARY PRODUCTS [Concomitant]
     Indication: ANAEMIA
     Dosage: 2 U, UNK
     Dates: start: 20131218, end: 20131219
  24. LIDOCAINE [Concomitant]
     Indication: MUCOSAL INFLAMMATION
     Dosage: 1 U, UNK
     Dates: start: 20131204
  25. GLUCOSE [Concomitant]
     Indication: RENAL FAILURE
     Dosage: 1000 ML, UNK
     Route: 042
     Dates: start: 20131204, end: 20131213

REACTIONS (4)
  - Inflammation [Unknown]
  - C-reactive protein increased [Unknown]
  - Renal failure [Not Recovered/Not Resolved]
  - Dehydration [Not Recovered/Not Resolved]
